FAERS Safety Report 19422134 (Version 1)
Quarter: 2021Q2

REPORT INFORMATION
  Report Type: Spontaneous
  Country: US (occurrence: US)
  Receive Date: 20210616
  Receipt Date: 20210616
  Transmission Date: 20210717
  Serious: Yes (Hospitalization)
  Sender: FDA-Public Use
  Company Number: None

PATIENT
  Sex: Male

DRUGS (3)
  1. SILDENAFIL. [Suspect]
     Active Substance: SILDENAFIL
     Indication: SYSTEMIC SCLERODERMA
     Dosage: ?          OTHER FREQUENCY:EVERY EIGHT HOURS;?
     Route: 048
     Dates: start: 20200815
  2. PANTOPRAZOLE, BENZONATATE [Concomitant]
  3. FLUOXETINE, ATOVASQUONE, PREDNISONE, METOCLOPRAM, DILTIAZEM [Concomitant]

REACTIONS (1)
  - Transplant [None]
